FAERS Safety Report 10102607 (Version 1)
Quarter: 2014Q2

REPORT INFORMATION
  Report Type: Report from Study
  Country: DE (occurrence: DE)
  Receive Date: 20140424
  Receipt Date: 20140424
  Transmission Date: 20141212
  Serious: Yes (Hospitalization)
  Sender: FDA-Public Use
  Company Number: DE-BAXTER-2014BAX019665

PATIENT
  Age: 21 Year
  Sex: 0

DRUGS (4)
  1. ADVATE 1000 I.E. [Suspect]
     Indication: PROPHYLAXIS
     Route: 065
     Dates: start: 20040802, end: 20140222
  2. ADVATE 1000 I.E. [Suspect]
     Indication: FACTOR VIII DEFICIENCY
  3. METAMIZOL NATRIUM [Concomitant]
     Indication: PAIN
     Route: 048
     Dates: start: 20140202, end: 20140307
  4. FERRO SANOL DUODENAL [Concomitant]
     Indication: ANAEMIA
     Route: 048
     Dates: start: 20140207

REACTIONS (1)
  - Ileus [Recovered/Resolved]
